FAERS Safety Report 21350732 (Version 1)
Quarter: 2022Q3

REPORT INFORMATION
  Report Type: Spontaneous
  Country: US (occurrence: US)
  Receive Date: 20220919
  Receipt Date: 20220919
  Transmission Date: 20221027
  Serious: No
  Sender: FDA-Public Use
  Company Number: US-PROGENICS PHARMACEUTICALS/LANTHEUS HOLDINGS-LMI-2022-00001

PATIENT
  Age: 62 Year
  Sex: Female

DRUGS (2)
  1. AZEDRA [Suspect]
     Active Substance: IOBENGUANE I-131
     Indication: Product used for unknown indication
     Dosage: UNK (DOSIMETRY DOSE)
     Dates: start: 20210830
  2. AZEDRA [Suspect]
     Active Substance: IOBENGUANE I-131
     Dosage: UNK (THERAPEUTIC DOSE)
     Dates: start: 20210921

REACTIONS (1)
  - Drug ineffective [Unknown]

NARRATIVE: CASE EVENT DATE: 20210921
